FAERS Safety Report 6295917-X (Version None)
Quarter: 2009Q3

REPORT INFORMATION
  Report Type: 
  Country: None (occurrence: None)
  Receive Date: 20090731
  Receipt Date: 20090720
  Transmission Date: 20100115
  Serious: Yes (Other)
  Sender: FDA-Public Use
  Company Number: 2009AP002964

PATIENT
  Sex: Male

DRUGS (5)
  1. DILT-CD [Suspect]
     Dosage: 240 MG; PO
     Route: 048
     Dates: end: 20090712
  2. METFORMIN [Concomitant]
  3. GLIPIZIDE [Concomitant]
  4. VALSARTAN [Concomitant]
  5. DILTIAZEM [Concomitant]

REACTIONS (6)
  - BALANCE DISORDER [None]
  - BLOOD GLUCOSE INCREASED [None]
  - BONE PAIN [None]
  - DIZZINESS [None]
  - MYALGIA [None]
  - PRODUCT SUBSTITUTION ISSUE [None]
